FAERS Safety Report 6314911-3 (Version None)
Quarter: 2009Q3

REPORT INFORMATION
  Report Type: 
  Country: None (occurrence: None)
  Receive Date: 20090819
  Receipt Date: 20090810
  Transmission Date: 20100115
  Serious: Yes (Death, Hospitalization)
  Sender: FDA-Public Use
  Company Number: A0764892A

PATIENT
  Sex: Male
  Weight: 120.5 kg

DRUGS (19)
  1. ADVAIR HFA [Suspect]
     Indication: DRUG USE FOR UNKNOWN INDICATION
     Dosage: 1PUFF TWICE PER DAY
     Route: 055
  2. SPIRIVA [Concomitant]
  3. NASACORT [Concomitant]
  4. XOPENEX [Concomitant]
  5. PULMICORT-100 [Concomitant]
  6. SINGULAIR [Concomitant]
  7. THEOPHYLLINE [Concomitant]
  8. NEURONTIN [Concomitant]
  9. COUMADIN [Concomitant]
  10. DIGOXIN [Concomitant]
  11. PREDNISONE [Concomitant]
  12. TRAZODONE HCL [Concomitant]
  13. ZESTRIL [Concomitant]
  14. LIPITOR [Concomitant]
  15. FLEXERIL [Concomitant]
  16. AMBIEN [Concomitant]
  17. ALBUTEROL [Concomitant]
  18. GLYBURIDE [Concomitant]
  19. LOVENOX [Concomitant]

REACTIONS (3)
  - ARRHYTHMIA [None]
  - CARDIAC FAILURE CONGESTIVE [None]
  - CHRONIC OBSTRUCTIVE PULMONARY DISEASE [None]
